FAERS Safety Report 24642583 (Version 1)
Quarter: 2024Q4

REPORT INFORMATION
  Report Type: Spontaneous
  Country: US (occurrence: None)
  Receive Date: 20241119
  Receipt Date: 20241119
  Transmission Date: 20250115
  Serious: Yes (Disabling)
  Sender: Public
  Company Number: None

PATIENT
  Age: 17 Year
  Sex: Female
  Weight: 63 kg

DRUGS (1)
  1. LEVAQUIN [Suspect]
     Active Substance: LEVOFLOXACIN
     Dates: start: 20160926, end: 20160928

REACTIONS (8)
  - Fatigue [None]
  - Pain in extremity [None]
  - Brain fog [None]
  - Dizziness [None]
  - Yellow skin [None]
  - Postural orthostatic tachycardia syndrome [None]
  - Mast cell activation syndrome [None]
  - Decreased activity [None]

NARRATIVE: CASE EVENT DATE: 20160926
